FAERS Safety Report 7129091-4 (Version None)
Quarter: 2010Q4

REPORT INFORMATION
  Report Type: 
  Country: None (occurrence: None)
  Receive Date: 20101130
  Receipt Date: 20101122
  Transmission Date: 20110411
  Serious: Yes (Congenital Anomaly)
  Sender: FDA-Public Use
  Company Number: AU-ROCHE-744650

PATIENT

DRUGS (1)
  1. ISOTRETINOIN [Suspect]
     Route: 064

REACTIONS (1)
  - CONGENITAL ANOMALY [None]
